FAERS Safety Report 13278773 (Version 2)
Quarter: 2017Q1

REPORT INFORMATION
  Report Type: Report from Study
  Country: US (occurrence: US)
  Receive Date: 20170228
  Receipt Date: 20170308
  Transmission Date: 20170428
  Serious: Yes (Hospitalization, Other)
  Sender: FDA-Public Use
  Company Number: US-GILEAD-2017-0253083

PATIENT
  Age: 45 Year
  Sex: Male
  Weight: 81.18 kg

DRUGS (8)
  1. LASIX [Concomitant]
     Active Substance: FUROSEMIDE
  2. INDERAL [Concomitant]
     Active Substance: PROPRANOLOL HYDROCHLORIDE
     Dosage: UNK
     Dates: start: 20161121
  3. RIBAVIRIN. [Suspect]
     Active Substance: RIBAVIRIN
     Indication: CHRONIC HEPATITIS C
     Dosage: 600 MG, BID
     Route: 048
  4. ASPERCREME                         /00021207/ [Concomitant]
     Dosage: UNK
     Dates: start: 20161010
  5. KEPPRA [Concomitant]
     Active Substance: LEVETIRACETAM
  6. XIFAXAN [Concomitant]
     Active Substance: RIFAXIMIN
     Indication: HEPATIC CIRRHOSIS
  7. SOFOSBUVIR W/VELPATASVIR [Suspect]
     Active Substance: SOFOSBUVIR\VELPATASVIR
     Indication: CHRONIC HEPATITIS C
     Dosage: 1 DF, QD
     Route: 048
  8. LACTULOSE. [Concomitant]
     Active Substance: LACTULOSE

REACTIONS (29)
  - Ammonia increased [Unknown]
  - Incoherent [Recovered/Resolved]
  - Aphasia [Recovered/Resolved]
  - Tooth infection [Unknown]
  - Nausea [Unknown]
  - Diarrhoea [Unknown]
  - Malaise [Unknown]
  - Dysphagia [Unknown]
  - Flatulence [Unknown]
  - Oedema peripheral [Not Recovered/Not Resolved]
  - Anger [Not Recovered/Not Resolved]
  - Abnormal behaviour [Recovered/Resolved]
  - Incontinence [Unknown]
  - Hyperhidrosis [Unknown]
  - Fatigue [Unknown]
  - Gastrointestinal pain [Unknown]
  - Food allergy [Unknown]
  - Dyspnoea [Unknown]
  - Abdominal pain [Unknown]
  - Drug dose omission [Recovered/Resolved]
  - Abnormal behaviour [Not Recovered/Not Resolved]
  - Sinusitis [Unknown]
  - Headache [Unknown]
  - Dyspepsia [Not Recovered/Not Resolved]
  - Unresponsive to stimuli [Recovered/Resolved]
  - Chronic sinusitis [Unknown]
  - Abdominal pain upper [Unknown]
  - Blood glucose decreased [Unknown]
  - Abdominal distension [Unknown]

NARRATIVE: CASE EVENT DATE: 20170128
